FAERS Safety Report 7826493-5 (Version None)
Quarter: 2011Q4

REPORT INFORMATION
  Report Type: 
  Country: None (occurrence: None)
  Receive Date: 20111011
  Receipt Date: 20110930
  Transmission Date: 20120403
  Serious: Yes (Hospitalization, Other)
  Sender: FDA-Public Use
  Company Number: 2011028871

PATIENT
  Age: 53 Year
  Sex: Female
  Weight: 83.4619 kg

DRUGS (35)
  1. ZOFRAN [Concomitant]
  2. LEXAPRO [Concomitant]
  3. SYNTHROID [Concomitant]
  4. HIZENTRA [Suspect]
  5. HIZENTRA [Suspect]
  6. OXYCONTIN [Concomitant]
  7. CLONAZEPAM [Concomitant]
  8. HIZENTRA [Suspect]
     Indication: IMMUNODEFICIENCY COMMON VARIABLE
     Dosage: SEE IMAGE
     Route: 058
     Dates: start: 20101218
  9. HIZENTRA [Suspect]
     Indication: IMMUNODEFICIENCY COMMON VARIABLE
     Dosage: SEE IMAGE
     Route: 058
     Dates: start: 20110903, end: 20110903
  10. HIZENTRA [Suspect]
     Indication: IMMUNODEFICIENCY COMMON VARIABLE
     Dosage: SEE IMAGE
     Route: 058
     Dates: start: 20101218
  11. HIZENTRA [Suspect]
     Indication: IMMUNODEFICIENCY COMMON VARIABLE
     Dosage: SEE IMAGE
     Route: 058
     Dates: start: 20101001
  12. HIZENTRA [Suspect]
     Indication: IMMUNODEFICIENCY COMMON VARIABLE
     Dosage: SEE IMAGE
     Route: 058
     Dates: start: 20110903, end: 20110903
  13. HIZENTRA [Suspect]
     Indication: IMMUNODEFICIENCY COMMON VARIABLE
     Dosage: SEE IMAGE
     Route: 058
     Dates: start: 20101001
  14. HIZENTRA [Suspect]
     Indication: IMMUNODEFICIENCY COMMON VARIABLE
     Dosage: SEE IMAGE
     Route: 058
     Dates: start: 20101218
  15. HIZENTRA [Suspect]
  16. HIZENTRA [Suspect]
  17. LOTEMAX [Concomitant]
  18. FLORINEF [Concomitant]
  19. LIDODERM [Concomitant]
  20. HIZENTRA [Suspect]
  21. HIZENTRA [Suspect]
  22. PROBIOTIC (LACTOBACILLUS ACIDOPHILUS) [Concomitant]
  23. ESTRING [Concomitant]
  24. RESTASIS [Concomitant]
  25. HIZENTRA [Suspect]
  26. HIZENTRA [Suspect]
  27. HIZENTRA [Suspect]
  28. LORATADINE [Concomitant]
  29. VIVELLE-DOT [Concomitant]
  30. BACTROBAN [Concomitant]
  31. HIZENTRA [Suspect]
  32. VICODIN [Concomitant]
  33. VITAMIN D [Concomitant]
  34. TYLENOL W/ CODEINE NO. 3 [Concomitant]
  35. PREDNISONE TAB [Concomitant]

REACTIONS (22)
  - MUSCULOSKELETAL CHEST PAIN [None]
  - HEADACHE [None]
  - SINUSITIS [None]
  - SINUS CONGESTION [None]
  - SINUS HEADACHE [None]
  - CHILLS [None]
  - ORAL INFECTION [None]
  - SKIN LESION [None]
  - CANDIDIASIS [None]
  - IMPAIRED HEALING [None]
  - DEVICE RELATED INFECTION [None]
  - HYPERHIDROSIS [None]
  - DYSPNOEA [None]
  - PAIN [None]
  - INTERSTITIAL LUNG DISEASE [None]
  - WOUND [None]
  - PRODUCTIVE COUGH [None]
  - BLOOD IMMUNOGLOBULIN G INCREASED [None]
  - INFLUENZA LIKE ILLNESS [None]
  - HERPES SIMPLEX [None]
  - MALAISE [None]
  - PARANASAL SINUS HYPERSECRETION [None]
